FAERS Safety Report 20968799 (Version 1)
Quarter: 2022Q2

REPORT INFORMATION
  Report Type: Spontaneous
  Country: US (occurrence: US)
  Receive Date: 20220616
  Receipt Date: 20220616
  Transmission Date: 20220720
  Serious: Yes (Other)
  Sender: FDA-Public Use
  Company Number: US-BRISTOL-MYERS SQUIBB COMPANY-2022-055891

PATIENT
  Age: 59 Year
  Sex: Male

DRUGS (3)
  1. NIVOLUMAB [Suspect]
     Active Substance: NIVOLUMAB
     Indication: Gastrointestinal melanoma
     Route: 065
     Dates: start: 201910
  2. NIVOLUMAB [Suspect]
     Active Substance: NIVOLUMAB
     Route: 065
     Dates: start: 202004
  3. IPILIMUMAB [Suspect]
     Active Substance: IPILIMUMAB
     Indication: Gastrointestinal melanoma
     Route: 065
     Dates: start: 201910

REACTIONS (4)
  - Immune-mediated hypothyroidism [Recovered/Resolved]
  - Type 1 diabetes mellitus [Recovered/Resolved]
  - Immune-mediated enterocolitis [Recovered/Resolved]
  - Arthritis [Recovering/Resolving]
